FAERS Safety Report 5886234-8 (Version None)
Quarter: 2008Q3

REPORT INFORMATION
  Report Type: 
  Country: None (occurrence: None)
  Receive Date: 20080917
  Receipt Date: 20080905
  Transmission Date: 20090109
  Serious: Yes (Other)
  Sender: FDA-Public Use
  Company Number: GB-ELI_LILLY_AND_COMPANY-GB200805003065

PATIENT
  Sex: Female

DRUGS (4)
  1. FORTEO [Suspect]
     Indication: OSTEOPOROSIS
     Dosage: 20 UG, DAILY (1/D)
     Route: 058
     Dates: start: 20080507, end: 20080509
  2. PROTELOS [Concomitant]
     Indication: OSTEOPOROSIS
     Dosage: 2 G, UNKNOWN
     Route: 048
     Dates: start: 20080115, end: 20080506
  3. WARFARIN SODIUM [Concomitant]
     Indication: AORTIC VALVE REPLACEMENT
     Dosage: UNK, AS NEEDED
     Route: 048
     Dates: start: 19910101
  4. ADCAL-D3 [Concomitant]
     Dosage: UNK, UNKNOWN
     Route: 065

REACTIONS (5)
  - CHILLS [None]
  - MUSCULOSKELETAL PAIN [None]
  - NAUSEA [None]
  - SCIATICA [None]
  - VOMITING [None]
